APPROVED DRUG PRODUCT: METRONIDAZOLE HYDROCHLORIDE
Active Ingredient: METRONIDAZOLE HYDROCHLORIDE
Strength: EQ 500MG BASE/VIAL
Dosage Form/Route: INJECTABLE;INJECTION
Application: A070295 | Product #001
Applicant: ABRAXIS PHARMACEUTICAL PRODUCTS
Approved: Oct 15, 1985 | RLD: No | RS: No | Type: DISCN